FAERS Safety Report 6734742-X (Version None)
Quarter: 2010Q2

REPORT INFORMATION
  Report Type: 
  Country: None (occurrence: None)
  Receive Date: 20100519
  Receipt Date: 20100519
  Transmission Date: 20101027
  Serious: Yes (Hospitalization, Disabling)
  Sender: FDA-Public Use
  Company Number: None

PATIENT
  Age: 64 Year
  Sex: Female
  Weight: 58.9676 kg

DRUGS (2)
  1. ACTONEL [Suspect]
     Indication: OSTEOPENIA
     Dosage: 1 PER MONTH WEEKLY 4 YRS MONTHLY 1 YR
  2. ACTONEL [Suspect]
     Indication: OSTEOPENIA
     Dosage: 1 PER MONTH WEEKLY 4 YRS MONTHLY 1 YR

REACTIONS (1)
  - FEMUR FRACTURE [None]
